FAERS Safety Report 23941477 (Version 1)
Quarter: 2024Q2

REPORT INFORMATION
  Report Type: Spontaneous
  Country: US (occurrence: US)
  Receive Date: 20240605
  Receipt Date: 20240605
  Transmission Date: 20240716
  Serious: No
  Sender: FDA-Public Use
  Company Number: US-PFIZER INC-PV202400072572

PATIENT
  Age: 16 Year
  Sex: Female

DRUGS (2)
  1. LITFULO [Suspect]
     Active Substance: RITLECITINIB TOSYLATE
     Dosage: UNK
     Dates: start: 202311
  2. MINOXIDIL [Concomitant]
     Active Substance: MINOXIDIL
     Dosage: UNK

REACTIONS (1)
  - Fatigue [Recovered/Resolved]

NARRATIVE: CASE EVENT DATE: 20231101
